FAERS Safety Report 10633231 (Version 1)
Quarter: 2014Q4

REPORT INFORMATION
  Report Type: Spontaneous
  Country: CO (occurrence: None)
  Receive Date: 20141203
  Receipt Date: 20141203
  Transmission Date: 20150529
  Serious: Yes (Other)
  Sender: FDA-Public Use
  Company Number: 2014-20862

PATIENT
  Age: 81 Year
  Sex: Female

DRUGS (1)
  1. EYLEA [Suspect]
     Active Substance: AFLIBERCEPT
     Indication: AGE-RELATED MACULAR DEGENERATION
     Dates: start: 20130915, end: 20140115

REACTIONS (4)
  - Inappropriate schedule of drug administration [None]
  - Drug ineffective [None]
  - Retinal scar [None]
  - Blindness [None]

NARRATIVE: CASE EVENT DATE: 20130915
